FAERS Safety Report 11100631 (Version 2)
Quarter: 2015Q2

REPORT INFORMATION
  Report Type: Spontaneous
  Country: US (occurrence: US)
  Receive Date: 20150508
  Receipt Date: 20150601
  Transmission Date: 20150821
  Serious: Yes (Death, Hospitalization)
  Sender: FDA-Public Use
  Company Number: US-PFIZER INC-2015155255

PATIENT
  Age: 67 Year
  Sex: Male

DRUGS (2)
  1. ERTAPENEM [Concomitant]
     Active Substance: ERTAPENEM
     Dosage: 1 G, DAILY
  2. TYGACIL [Suspect]
     Active Substance: TIGECYCLINE
     Indication: BACTERAEMIA
     Dosage: 50 MG, 2X/DAY

REACTIONS (4)
  - Death [Fatal]
  - Vomiting [Unknown]
  - Asthenia [Unknown]
  - Nausea [Unknown]

NARRATIVE: CASE EVENT DATE: 20150502
